FAERS Safety Report 25230603 (Version 1)
Quarter: 2025Q2

REPORT INFORMATION
  Report Type: Spontaneous
  Country: US (occurrence: None)
  Receive Date: 20250422
  Receipt Date: 20250422
  Transmission Date: 20250716
  Serious: Yes (Other)
  Sender: FDA-CTU
  Company Number: None

PATIENT
  Age: 41 Year
  Sex: Female
  Weight: 86.2 kg

DRUGS (1)
  1. XOLAIR [Suspect]
     Active Substance: OMALIZUMAB
     Indication: Idiopathic urticaria
     Dosage: OTHER FREQUENCY : MONTHLY;?
     Route: 058
     Dates: start: 20250416, end: 20250417

REACTIONS (4)
  - Injection site erythema [None]
  - Asthma [None]
  - Injection site pruritus [None]
  - Injection site urticaria [None]

NARRATIVE: CASE EVENT DATE: 20250417
